FAERS Safety Report 9373438 (Version 1)
Quarter: 2013Q2

REPORT INFORMATION
  Report Type: Spontaneous
  Country: RU (occurrence: RU)
  Receive Date: 20130627
  Receipt Date: 20130627
  Transmission Date: 20140414
  Serious: Yes (Hospitalization)
  Sender: FDA-Public Use
  Company Number: RU-ASTRAZENECA-2013SE48096

PATIENT
  Sex: Female
  Weight: 120 kg

DRUGS (2)
  1. BRILINTA [Suspect]
     Indication: ACUTE CORONARY SYNDROME
     Route: 048
     Dates: start: 20130608, end: 20130611
  2. PROTAPHANE [Concomitant]
     Indication: DIABETES MELLITUS
     Route: 030

REACTIONS (2)
  - Haemoglobin decreased [Unknown]
  - Post procedural haemorrhage [Recovered/Resolved]
